FAERS Safety Report 8767059 (Version 1)
Quarter: 2012Q4

REPORT INFORMATION
  Report Type: 
  Country: JP (occurrence: JP)
  Receive Date: 20120904
  Receipt Date: 20120904
  Transmission Date: 20130627
  Serious: Yes (Death, Life-Threatening, Other)
  Sender: FDA-Public Use
  Company Number: JP-BAYER-2011-099940

PATIENT
  Age: 75 Year
  Sex: Male
  Weight: 70 kg

DRUGS (10)
  1. NEXAVAR [Suspect]
     Indication: HEPATIC NEOPLASM MALIGNANT
     Dosage: UNK
     Route: 048
     Dates: start: 20081210
  2. NEXAVAR [Suspect]
     Indication: HEPATIC NEOPLASM MALIGNANT
     Dosage: 400 mg, QD
     Route: 048
     Dates: start: 20090820, end: 20110907
  3. KAYTWO [Concomitant]
     Dosage: Daily dose 20 mg
     Route: 048
     Dates: end: 20110907
  4. PURSENNID [Concomitant]
     Dosage: Daily dose 24 mg
     Route: 048
     Dates: end: 20110907
  5. FERRUM [Concomitant]
     Dosage: Daily dose 100 mg
     Route: 048
     Dates: end: 20110907
  6. REBAMIPIDE [Concomitant]
     Dosage: Daily dose 300 mg
     Route: 048
     Dates: end: 20110907
  7. LIVACT [Concomitant]
     Dosage: Daily dose 12.45 g
     Route: 048
     Dates: end: 20110907
  8. GASTER [Concomitant]
     Dosage: Daily dose 10 mg
     Route: 048
     Dates: end: 20110907
  9. MAGLAX [Concomitant]
     Dosage: Daily dose 990 mg
     Route: 048
     Dates: end: 20110907
  10. ALDACTONE A [Concomitant]
     Indication: HYPERTENSION
     Dosage: Daily dose 25 mg
     Route: 048
     Dates: end: 20110907

REACTIONS (14)
  - Putamen haemorrhage [Not Recovered/Not Resolved]
  - Altered state of consciousness [Not Recovered/Not Resolved]
  - Septic shock [Fatal]
  - Pyrexia [Fatal]
  - Blood pressure decreased [Fatal]
  - Multi-organ failure [Fatal]
  - Hypertension [Recovered/Resolved]
  - Platelet count decreased [Recovering/Resolving]
  - Palmar-plantar erythrodysaesthesia syndrome [None]
  - Amylase increased [None]
  - White blood cell count decreased [None]
  - Fatigue [None]
  - Cystitis [None]
  - Pneumonia [Not Recovered/Not Resolved]
